FAERS Safety Report 22744792 (Version 3)
Quarter: 2023Q4

REPORT INFORMATION
  Report Type: Report from Study
  Country: ZA (occurrence: ZA)
  Receive Date: 20230725
  Receipt Date: 20231011
  Transmission Date: 20240110
  Serious: Yes (Hospitalization)
  Sender: FDA-Public Use
  Company Number: ZA-ABBVIE-5333565

PATIENT
  Age: 42 Year
  Sex: Female

DRUGS (7)
  1. HUMIRA [Suspect]
     Active Substance: ADALIMUMAB
     Indication: Rheumatoid arthritis
     Route: 058
  2. CELEBREX [Concomitant]
     Active Substance: CELECOXIB
     Indication: Arthritis
     Dosage: FORM STRENGTH: 200 MILLIGRAM
     Route: 048
  3. ACETAMINOPHEN\TRAMADOL [Concomitant]
     Active Substance: ACETAMINOPHEN\TRAMADOL
     Indication: Pain
     Route: 048
  4. VESICARE [Concomitant]
     Active Substance: SOLIFENACIN SUCCINATE
     Indication: Product used for unknown indication
  5. METHOTREXATE [Concomitant]
     Active Substance: METHOTREXATE
     Indication: Rheumatoid arthritis
     Route: 048
  6. RINVOQ [Suspect]
     Active Substance: UPADACITINIB
     Indication: Rheumatoid arthritis
     Dosage: 15 MILLIGRAM
     Route: 048
     Dates: start: 20230710
  7. Ciproflo [Concomitant]
     Indication: Urinary tract infection
     Dosage: FORM STRENGTH: 500 MILLIGRAM
     Route: 048
     Dates: start: 20230714, end: 20230717

REACTIONS (6)
  - Overgrowth fungal [Recovered/Resolved]
  - Oral candidiasis [Not Recovered/Not Resolved]
  - Urinary tract infection [Recovered/Resolved]
  - Candida infection [Not Recovered/Not Resolved]
  - Vulvovaginal candidiasis [Not Recovered/Not Resolved]
  - Urinary tract candidiasis [Recovered/Resolved]

NARRATIVE: CASE EVENT DATE: 20230711
